FAERS Safety Report 15978752 (Version 1)
Quarter: 2019Q1

REPORT INFORMATION
  Report Type: Spontaneous
  Country: BR (occurrence: BR)
  Receive Date: 20190219
  Receipt Date: 20190219
  Transmission Date: 20190418
  Serious: Yes (Other)
  Sender: FDA-Public Use
  Company Number: BR-SA-2018SA213923

PATIENT
  Age: 33 Year
  Sex: Female
  Weight: 75 kg

DRUGS (1)
  1. CLEXANE [Suspect]
     Active Substance: ENOXAPARIN SODIUM
     Indication: THROMBOSIS
     Dosage: UNK UNK, UNK
     Route: 058
     Dates: start: 201806, end: 20190121

REACTIONS (2)
  - Exposure during pregnancy [Unknown]
  - Caesarean section [Unknown]
